FAERS Safety Report 9112979 (Version 1)
Quarter: 2013Q1

REPORT INFORMATION
  Report Type: Spontaneous
  Country: GB (occurrence: GB)
  Receive Date: 20130211
  Receipt Date: 20130211
  Transmission Date: 20140127
  Serious: Yes (Other)
  Sender: FDA-Public Use
  Company Number: GB-PFIZER INC-2013050716

PATIENT
  Age: 43 Year
  Sex: Female

DRUGS (2)
  1. LYRICA [Suspect]
     Indication: MUSCLE RELAXANT THERAPY
     Dosage: 75 MG, 2X/DAY
  2. LYRICA [Suspect]
     Dosage: 75 MG, 1X/DAY

REACTIONS (5)
  - Balance disorder [Unknown]
  - Disorientation [Unknown]
  - Coordination abnormal [Unknown]
  - Quality of life decreased [Unknown]
  - Off label use [Unknown]
